FAERS Safety Report 7074140-5 (Version None)
Quarter: 2010Q4

REPORT INFORMATION
  Report Type: 
  Country: None (occurrence: None)
  Receive Date: 20101029
  Receipt Date: 20101022
  Transmission Date: 20110411
  Serious: Yes (Other)
  Sender: FDA-Public Use
  Company Number: US-PFIZER INC-2010114573

PATIENT
  Sex: Female
  Weight: 89 kg

DRUGS (6)
  1. DEPO-PROVERA [Suspect]
     Indication: OFF LABEL USE
     Dosage: 150 MG, EVERY 3 MONTHS
     Dates: start: 20090722
  2. DEPO-PROVERA [Suspect]
     Indication: MENORRHAGIA
  3. SPIRONOLACTONE [Suspect]
  4. AYGESTIN [Suspect]
     Dosage: UNK
  5. CATAFLAM [Suspect]
  6. ZYRTEC [Concomitant]
     Indication: HYPERSENSITIVITY

REACTIONS (7)
  - ARTHRALGIA [None]
  - HYPERTENSION [None]
  - JOINT SWELLING [None]
  - METRORRHAGIA [None]
  - MUSCULAR WEAKNESS [None]
  - OEDEMA PERIPHERAL [None]
  - PAIN IN EXTREMITY [None]
